FAERS Safety Report 8057370-5 (Version None)
Quarter: 2012Q1

REPORT INFORMATION
  Report Type: 
  Country: None (occurrence: None)
  Receive Date: 20120119
  Receipt Date: 20120112
  Transmission Date: 20120608
  Serious: Yes (Hospitalization)
  Sender: FDA-Public Use
  Company Number: US-ASTRAZENECA-2010SE25345

PATIENT
  Age: 43 Year
  Sex: Male
  Weight: 63.5 kg

DRUGS (22)
  1. SEROQUEL [Suspect]
     Indication: SLEEP DISORDER
     Route: 048
  2. SEROQUEL [Suspect]
     Route: 048
     Dates: start: 20100101
  3. SEROQUEL [Suspect]
     Route: 048
  4. SEROQUEL [Suspect]
     Route: 048
  5. SEROQUEL [Suspect]
     Route: 048
  6. SEROQUEL [Suspect]
     Route: 048
  7. SEROQUEL [Suspect]
     Route: 048
  8. SEROQUEL [Suspect]
     Indication: DEPRESSION
     Route: 048
  9. SEROQUEL [Suspect]
     Route: 048
  10. SEROQUEL [Suspect]
     Indication: BIPOLAR DISORDER
     Route: 048
  11. SEROQUEL [Suspect]
     Route: 048
  12. XANAX [Concomitant]
     Route: 048
  13. SEROQUEL [Suspect]
     Route: 048
     Dates: start: 20100101
  14. SEROQUEL [Suspect]
     Route: 048
     Dates: start: 20100101
  15. SEROQUEL [Suspect]
     Route: 048
     Dates: start: 20100101
  16. SEROQUEL [Suspect]
     Route: 048
  17. SEROQUEL [Suspect]
     Indication: BIPOLAR I DISORDER
     Route: 048
  18. SEROQUEL [Suspect]
     Indication: ANXIETY
     Route: 048
  19. SEROQUEL [Suspect]
     Route: 048
     Dates: start: 20100101
  20. SEROQUEL [Suspect]
     Route: 048
  21. SEROQUEL [Suspect]
     Route: 048
  22. KLONOPIN [Concomitant]
     Route: 048

REACTIONS (17)
  - DRUG PRESCRIBING ERROR [None]
  - DRUG DOSE OMISSION [None]
  - INCORRECT DOSE ADMINISTERED [None]
  - HEAD INJURY [None]
  - INSOMNIA [None]
  - IRRITABILITY [None]
  - OFF LABEL USE [None]
  - CONVULSION [None]
  - AGGRESSION [None]
  - FALL [None]
  - WEIGHT DECREASED [None]
  - SCREAMING [None]
  - ADVERSE EVENT [None]
  - NIGHTMARE [None]
  - ABDOMINAL DISCOMFORT [None]
  - SLEEP DISORDER [None]
  - NAUSEA [None]
